FAERS Safety Report 5443708-1 (Version None)
Quarter: 2007Q3

REPORT INFORMATION
  Report Type: 
  Country: None (occurrence: None)
  Receive Date: 20070905
  Receipt Date: 20070829
  Transmission Date: 20080115
  Serious: Yes (Other)
  Sender: FDA-Public Use
  Company Number: BR-ASTRAZENECA-2007UW20719

PATIENT
  Age: 52 Year
  Sex: Female
  Weight: 44 kg

DRUGS (3)
  1. SEROQUEL [Suspect]
     Indication: BIPOLAR DISORDER
     Route: 048
     Dates: start: 20070501
  2. NEURAL [Concomitant]
  3. VENLIFT [Concomitant]

REACTIONS (3)
  - ANAEMIA [None]
  - SUICIDAL IDEATION [None]
  - WEIGHT DECREASED [None]
